FAERS Safety Report 6380113-8 (Version None)
Quarter: 2009Q3

REPORT INFORMATION
  Report Type: 
  Country: None (occurrence: None)
  Receive Date: 20090929
  Receipt Date: 20070619
  Transmission Date: 20100115
  Serious: Yes (Other)
  Sender: FDA-Public Use
  Company Number: US-ASTRAZENECA-2006UW23236

PATIENT
  Age: 14346 Day
  Sex: Female
  Weight: 117.5 kg

DRUGS (18)
  1. SEROQUEL [Suspect]
     Indication: PSYCHOTIC DISORDER
     Route: 048
     Dates: start: 19980101
  2. SEROQUEL [Suspect]
     Indication: BIPOLAR DISORDER
     Route: 048
     Dates: start: 19980101
  3. SEROQUEL [Suspect]
     Indication: DEPRESSION
     Route: 048
     Dates: start: 19980101
  4. SEROQUEL [Suspect]
     Indication: SLEEP DISORDER
     Route: 048
     Dates: start: 19980101
  5. SEROQUEL [Suspect]
     Dosage: 200 MG 3 AT NIGHT
     Route: 048
     Dates: start: 20020718
  6. SEROQUEL [Suspect]
     Dosage: 200 MG 3 AT NIGHT
     Route: 048
     Dates: start: 20020718
  7. SEROQUEL [Suspect]
     Dosage: 200 MG 3 AT NIGHT
     Route: 048
     Dates: start: 20020718
  8. SEROQUEL [Suspect]
     Dosage: 200 MG 3 AT NIGHT
     Route: 048
     Dates: start: 20020718
  9. FEN-PHEN [Concomitant]
  10. REDUX [Concomitant]
  11. CLOZARIL [Concomitant]
  12. RISPERDAL [Concomitant]
  13. COCAINE [Concomitant]
  14. SPEED [Concomitant]
  15. WELLBUTRIN SR [Concomitant]
     Route: 048
     Dates: start: 20020719
  16. NEURONTIN [Concomitant]
     Dosage: 1500 MG TO 2100 MG DAILY
     Dates: start: 20020718
  17. CELEXA [Concomitant]
     Dosage: 20 MG QAM TO 60 MG QAM
     Route: 048
     Dates: start: 20020911
  18. LEVOTHROID [Concomitant]
     Route: 048
     Dates: start: 20030711

REACTIONS (5)
  - DIABETES MELLITUS [None]
  - EYE DISORDER [None]
  - GESTATIONAL DIABETES [None]
  - HYPERGLYCAEMIA [None]
  - PAIN IN EXTREMITY [None]
